FAERS Safety Report 16187566 (Version 1)
Quarter: 2019Q2

REPORT INFORMATION
  Report Type: Spontaneous
  Country: US (occurrence: US)
  Receive Date: 20190412
  Receipt Date: 20190412
  Transmission Date: 20190711
  Serious: Yes (Other)
  Sender: FDA-Public Use
  Company Number: US-SA-2019SA097122

PATIENT
  Age: 81 Year
  Sex: Male

DRUGS (1)
  1. MULTAQ [Suspect]
     Active Substance: DRONEDARONE
     Indication: ATRIAL FIBRILLATION
     Dosage: UNK UNK, UNK
     Route: 065

REACTIONS (3)
  - Oesophageal carcinoma [Not Recovered/Not Resolved]
  - Wrong technique in product usage process [Unknown]
  - Feeding disorder [Not Recovered/Not Resolved]
